APPROVED DRUG PRODUCT: CIPRODEX
Active Ingredient: CIPROFLOXACIN; DEXAMETHASONE
Strength: 0.3%;0.1%
Dosage Form/Route: SUSPENSION/DROPS;OTIC
Application: N021537 | Product #001 | TE Code: AB
Applicant: SANDOZ INC
Approved: Jul 18, 2003 | RLD: Yes | RS: Yes | Type: RX